FAERS Safety Report 22798202 (Version 3)
Quarter: 2025Q1

REPORT INFORMATION
  Report Type: Spontaneous
  Country: BR (occurrence: BR)
  Receive Date: 20230808
  Receipt Date: 20250128
  Transmission Date: 20250409
  Serious: Yes (Hospitalization, Other)
  Sender: CELLTRION
  Company Number: BR-CELLTRION INC.-2023BR015444

PATIENT

DRUGS (7)
  1. INFLIXIMAB [Suspect]
     Active Substance: INFLIXIMAB
     Indication: Rheumatoid arthritis
     Route: 042
     Dates: start: 20220211
  2. INFLIXIMAB [Suspect]
     Active Substance: INFLIXIMAB
     Indication: Osteoarthritis
  3. INFLIXIMAB [Suspect]
     Active Substance: INFLIXIMAB
     Indication: Osteoporosis
  4. CORTISONE [Concomitant]
     Active Substance: CORTISONE
     Indication: Rheumatoid arthritis
     Route: 048
     Dates: start: 2018
  5. CORTISONE [Concomitant]
     Active Substance: CORTISONE
     Indication: Osteoarthritis
  6. CORTISONE [Concomitant]
     Active Substance: CORTISONE
     Indication: Osteoporosis
  7. PREGABALIN [Concomitant]
     Active Substance: PREGABALIN
     Indication: Pain
     Route: 048

REACTIONS (5)
  - Nephrolithiasis [Recovering/Resolving]
  - Cholecystectomy [Recovering/Resolving]
  - Pain in extremity [Recovering/Resolving]
  - Intentional dose omission [Recovering/Resolving]
  - Intentional product use issue [Unknown]

NARRATIVE: CASE EVENT DATE: 20230615
